FAERS Safety Report 21113793 (Version 3)
Quarter: 2023Q1

REPORT INFORMATION
  Report Type: Report from Study
  Country: RU (occurrence: RU)
  Receive Date: 20220721
  Receipt Date: 20230124
  Transmission Date: 20230418
  Serious: Yes (Hospitalization)
  Sender: FDA-Public Use
  Company Number: RU-NOVARTISPH-NVSC2022RU163362

PATIENT
  Age: 64 Year
  Sex: Female
  Weight: 74 kg

DRUGS (9)
  1. LETROZOLE [Suspect]
     Active Substance: LETROZOLE
     Indication: Breast cancer
     Dosage: 2.5 MG, OD
     Route: 048
     Dates: start: 20200710
  2. RIBOCICLIB [Suspect]
     Active Substance: RIBOCICLIB
     Indication: Breast cancer
     Dosage: 400 MG, OD
     Route: 048
     Dates: start: 20200710
  3. LISINOPRIL [Concomitant]
     Active Substance: LISINOPRIL
     Indication: Hypertension
     Dosage: 10 MG, OD
     Route: 048
     Dates: start: 20100310
  4. BISOPROLOL [Concomitant]
     Active Substance: BISOPROLOL
     Indication: Hypertension
     Dosage: 1 TAB, OD
     Route: 048
     Dates: start: 20100310
  5. INDAPAMIDE [Concomitant]
     Active Substance: INDAPAMIDE
     Indication: Hypertension
     Dosage: 2.5 MG, OD
     Route: 048
     Dates: start: 20100310
  6. CALCIUM\CHOLECALCIFEROL [Concomitant]
     Active Substance: CALCIUM\CHOLECALCIFEROL
     Indication: Osteoarthritis
     Dosage: 500 MG, TID
     Route: 048
     Dates: start: 20211130
  7. KETONAL [Concomitant]
     Indication: Neck pain
     Dosage: 1 TAB, BID
     Route: 048
     Dates: start: 20220214
  8. ATORVASTATIN [Concomitant]
     Active Substance: ATORVASTATIN
     Indication: Cerebrovascular disorder
     Dosage: 20 MG, OD
     Route: 048
     Dates: start: 20220126
  9. MAGNESIUM ASPARTATE\POTASSIUM ASPARTATE [Concomitant]
     Active Substance: MAGNESIUM ASPARTATE\POTASSIUM ASPARTATE
     Indication: Blood potassium decreased
     Dosage: 1 TAB, BID
     Route: 048
     Dates: start: 20220513

REACTIONS (2)
  - Osteoarthritis [Recovered/Resolved]
  - Humerus fracture [Recovered/Resolved with Sequelae]

NARRATIVE: CASE EVENT DATE: 20220718
